FAERS Safety Report 6015509-7 (Version None)
Quarter: 2008Q4

REPORT INFORMATION
  Report Type: 
  Country: None (occurrence: None)
  Receive Date: 20081218
  Receipt Date: 20081210
  Transmission Date: 20090506
  Serious: Yes (Hospitalization)
  Sender: FDA-Public Use
  Company Number: TRP_06010_2008

PATIENT
  Age: 62 Year
  Sex: Female

DRUGS (2)
  1. RIBAVIRIN [Suspect]
     Indication: HEPATITIS C
     Dosage: 1000 MG DAILY
  2. PEGYLATED INTERFERON ALFA [Suspect]
     Indication: HEPATITIS C
     Dosage: 180 UG 1X/WEEK

REACTIONS (19)
  - ALOPECIA [None]
  - APHTHOUS STOMATITIS [None]
  - BETA 2 MICROGLOBULIN INCREASED [None]
  - DISEASE RECURRENCE [None]
  - DRY EYE [None]
  - GRANULOMATOUS LIVER DISEASE [None]
  - HAEMANGIOMA [None]
  - HEPATIC NEOPLASM [None]
  - HEPATITIS C [None]
  - LEUKOPENIA [None]
  - LYMPHADENOPATHY [None]
  - LYMPHOPROLIFERATIVE DISORDER [None]
  - METASTASIS [None]
  - MOBILITY DECREASED [None]
  - NORMOCHROMIC NORMOCYTIC ANAEMIA [None]
  - PLATELET COUNT DECREASED [None]
  - RED BLOOD CELL SEDIMENTATION RATE INCREASED [None]
  - THERAPEUTIC RESPONSE UNEXPECTED [None]
  - TUBERCULOSIS [None]
